FAERS Safety Report 9202350 (Version 3)
Quarter: 2014Q2

REPORT INFORMATION
  Report Type: Spontaneous
  Country: US (occurrence: US)
  Receive Date: 20130401
  Receipt Date: 20140428
  Transmission Date: 20141212
  Serious: Yes (Other)
  Sender: FDA-Public Use
  Company Number: US-BAYER-2013-038161

PATIENT
  Age: 31 Year
  Sex: Female

DRUGS (4)
  1. YAZ [Suspect]
     Dosage: UNK
  2. YASMIN [Suspect]
     Dosage: UNK
  3. LEXAPRO [Concomitant]
  4. HYDROCODONE [Concomitant]

REACTIONS (5)
  - Cholecystitis chronic [None]
  - Cholecystectomy [None]
  - Injury [None]
  - Emotional distress [None]
  - Pain [None]
